FAERS Safety Report 5345937-4 (Version None)
Quarter: 2007Q2

REPORT INFORMATION
  Report Type: 
  Country: None (occurrence: None)
  Receive Date: 20070605
  Receipt Date: 20070601
  Transmission Date: 20071010
  Serious: Yes (Life-Threatening, Disabling)
  Sender: FDA-Public Use
  Company Number: B0461797A

PATIENT
  Age: 24 Year
  Sex: Male

DRUGS (15)
  1. EPIVIR [Suspect]
     Indication: HIV INFECTION
     Dosage: 300MG PER DAY
     Route: 048
     Dates: start: 20040515
  2. NORVIR [Suspect]
     Indication: HIV INFECTION
     Route: 048
     Dates: start: 19991101, end: 20001224
  3. NORVIR [Suspect]
     Route: 048
     Dates: start: 20040425
  4. VIDEX EC [Suspect]
     Indication: HIV INFECTION
     Route: 048
     Dates: start: 20010721, end: 20040514
  5. STOCRIN [Suspect]
     Indication: HIV INFECTION
     Route: 048
     Dates: start: 20000724, end: 20000725
  6. STOCRIN [Suspect]
     Route: 048
     Dates: start: 20000925, end: 20001002
  7. KALETRA [Suspect]
     Indication: HIV INFECTION
     Route: 048
     Dates: start: 20001225, end: 20040424
  8. VIDEX [Suspect]
     Indication: HIV INFECTION
     Route: 048
     Dates: start: 19941219, end: 20010721
  9. ZERIT [Suspect]
     Route: 048
     Dates: start: 19970825, end: 20011020
  10. CRIXIVAN [Suspect]
     Indication: HIV INFECTION
     Dosage: 800MG PER DAY
     Route: 048
     Dates: start: 20000318, end: 20000524
  11. INVIRASE [Suspect]
     Indication: HIV INFECTION
     Dosage: 800MG PER DAY
     Route: 048
     Dates: start: 19990619, end: 20001224
  12. REYATAZ [Concomitant]
     Indication: HIV INFECTION
     Route: 048
     Dates: start: 20040425
  13. VIREAD [Concomitant]
     Indication: HIV INFECTION
     Route: 048
     Dates: start: 20040425
  14. ANTI-HEMOPHILIC GLOBULIN [Concomitant]
     Route: 042
     Dates: start: 20050401
  15. ZIAGEN [Concomitant]
     Route: 048
     Dates: start: 20000724, end: 20000725

REACTIONS (6)
  - ASTHENIA [None]
  - CARDIOMEGALY [None]
  - DYSPNOEA [None]
  - PALPITATIONS [None]
  - PULMONARY ARTERY DILATATION [None]
  - PULMONARY HYPERTENSION [None]
